FAERS Safety Report 9494652 (Version 2)
Quarter: 2013Q3

REPORT INFORMATION
  Report Type: Spontaneous
  Country: US (occurrence: US)
  Receive Date: 20130903
  Receipt Date: 20130909
  Transmission Date: 20140515
  Serious: Yes (Hospitalization, Other)
  Sender: FDA-Public Use
  Company Number: US-JNJFOC-20130812636

PATIENT
  Age: 3 Year
  Sex: Female

DRUGS (3)
  1. CHILDREN^S MOTRIN [Suspect]
     Indication: COUGH
     Route: 065
  2. CHILDREN^S MOTRIN [Suspect]
     Indication: PYREXIA
     Route: 065
  3. PEDIAZOLE [Concomitant]
     Route: 065

REACTIONS (18)
  - Scar [Unknown]
  - Uterine haemorrhage [Unknown]
  - Cervical spinal stenosis [Unknown]
  - Genital disorder female [Unknown]
  - Vulvovaginal adhesion [Unknown]
  - Toxic epidermal necrolysis [Unknown]
  - Stevens-Johnson syndrome [Unknown]
  - Vaginal infection [Unknown]
  - Blindness unilateral [Unknown]
  - Lacrimation decreased [Unknown]
  - Photosensitivity reaction [Unknown]
  - Sinusitis [Unknown]
  - Pneumonia [Unknown]
  - Peripheral nerve injury [Unknown]
  - Petit mal epilepsy [Unknown]
  - Cognitive disorder [Unknown]
  - Balance disorder [Unknown]
  - Pulmonary fibrosis [Unknown]
